FAERS Safety Report 22325129 (Version 7)
Quarter: 2025Q1

REPORT INFORMATION
  Report Type: Report from Study
  Country: JP (occurrence: JP)
  Receive Date: 20230516
  Receipt Date: 20250320
  Transmission Date: 20250409
  Serious: Yes (Life-Threatening, Hospitalization)
  Sender: ROCHE
  Company Number: JP-CHUGAI-2023016935

PATIENT
  Age: 76 Year
  Sex: Female
  Weight: 42.0 kg

DRUGS (22)
  1. HEMLIBRA [Suspect]
     Active Substance: EMICIZUMAB-KXWH
     Indication: Acquired haemophilia
     Route: 058
     Dates: start: 20230501, end: 20230501
  2. HEMLIBRA [Suspect]
     Active Substance: EMICIZUMAB-KXWH
     Route: 058
     Dates: start: 20230502, end: 20230502
  3. HEMLIBRA [Suspect]
     Active Substance: EMICIZUMAB-KXWH
     Dosage: 1.5 MILLIGRAM/KILOGRAM, ONCE/WEEK
     Route: 058
     Dates: start: 20230508, end: 20230626
  4. RITUXIMAB [Suspect]
     Active Substance: RITUXIMAB
     Indication: Immunosuppression
     Dosage: 375 MILLIGRAM/SQ. METER, ONCE/WEEK
     Route: 042
     Dates: start: 20230418, end: 20230509
  5. PREDONINE [Suspect]
     Active Substance: PREDNISOLONE
     Indication: Product used for unknown indication
     Dosage: 40 MILLIGRAM/DAY
     Route: 042
     Dates: start: 20230330, end: 20230426
  6. PREDONINE [Suspect]
     Active Substance: PREDNISOLONE
     Dosage: 30 MILLIGRAM/DAY
     Route: 042
     Dates: start: 20230427, end: 20230503
  7. PREDONINE [Suspect]
     Active Substance: PREDNISOLONE
     Dosage: 25 MILLIGRAM/DAY
     Route: 042
     Dates: start: 20230504, end: 20230510
  8. PREDONINE [Suspect]
     Active Substance: PREDNISOLONE
     Dosage: 20 MILLIGRAM/DAY
     Route: 042
     Dates: start: 20230511, end: 20230605
  9. PREDONINE [Suspect]
     Active Substance: PREDNISOLONE
     Dosage: 15 MILLIGRAM/DAY
     Route: 042
     Dates: start: 20230606, end: 20230630
  10. PREDONINE [Suspect]
     Active Substance: PREDNISOLONE
     Dosage: 12.5 MILLIGRAM/DAY
     Route: 042
     Dates: start: 20230701
  11. PREDONINE [Suspect]
     Active Substance: PREDNISOLONE
     Route: 042
  12. ALLOID G [Concomitant]
     Active Substance: SODIUM ALGINATE
     Route: 048
     Dates: start: 20230403, end: 20230613
  13. MIYA-BM [Concomitant]
     Active Substance: CLOSTRIDIUM BUTYRICUM SPORES STRAIN M-55
     Route: 048
     Dates: start: 20230509
  14. CLAFORAN [Concomitant]
     Active Substance: CEFOTAXIME SODIUM
     Route: 065
     Dates: start: 20230508, end: 20230517
  15. OMEPRAZOLE [Concomitant]
     Active Substance: OMEPRAZOLE
     Route: 065
     Dates: start: 20230330, end: 20230529
  16. SOYBEAN OIL [Concomitant]
     Active Substance: SOYBEAN OIL
     Route: 065
     Dates: start: 20230426, end: 20230521
  17. NOVOSEVEN [Concomitant]
     Active Substance: COAGULATION FACTOR VIIA RECOMBINANT HUMAN
     Indication: Haemorrhage
     Dosage: 5.0 MILLIGRAM, QID
     Dates: start: 20230504, end: 20230504
  18. NOVOSEVEN [Concomitant]
     Active Substance: COAGULATION FACTOR VIIA RECOMBINANT HUMAN
     Dates: start: 20230505, end: 20230505
  19. NOVOSEVEN [Concomitant]
     Active Substance: COAGULATION FACTOR VIIA RECOMBINANT HUMAN
     Dosage: 5.0 MILLIGRAM, QID
     Dates: start: 20230506, end: 20230508
  20. NOVOSEVEN [Concomitant]
     Active Substance: COAGULATION FACTOR VIIA RECOMBINANT HUMAN
     Dosage: 4.0 MILLIGRAM, QD
     Dates: start: 20230509, end: 20230509
  21. NOVOSEVEN [Concomitant]
     Active Substance: COAGULATION FACTOR VIIA RECOMBINANT HUMAN
     Dates: start: 20230509, end: 20230515
  22. NOVOSEVEN [Concomitant]
     Active Substance: COAGULATION FACTOR VIIA RECOMBINANT HUMAN
     Dosage: 5.0 MILLIGRAM, QD
     Dates: start: 20230517, end: 20230517

REACTIONS (3)
  - Oesophageal ulcer haemorrhage [Recovered/Resolved]
  - Escherichia bacteraemia [Recovered/Resolved]
  - Hypogammaglobulinaemia [Recovered/Resolved with Sequelae]

NARRATIVE: CASE EVENT DATE: 20230504
